FAERS Safety Report 21648297 (Version 1)
Quarter: 2022Q4

REPORT INFORMATION
  Report Type: Spontaneous
  Country: DE (occurrence: DE)
  Receive Date: 20221128
  Receipt Date: 20221128
  Transmission Date: 20230113
  Serious: Yes (Hospitalization)
  Sender: FDA-Public Use
  Company Number: None

PATIENT
  Age: 81 Year
  Sex: Male
  Weight: 60 kg

DRUGS (9)
  1. APIXABAN [Suspect]
     Active Substance: APIXABAN
     Indication: Product used for unknown indication
     Dosage: 2.5 MG, 1-0-1-0
  2. ASPIRIN [Suspect]
     Active Substance: ASPIRIN
     Indication: Product used for unknown indication
     Dosage: 100 MG, 0-1-0-0
  3. RISPERIDONE [Suspect]
     Active Substance: RISPERIDONE
     Indication: Product used for unknown indication
     Dosage: 0.5 MG, 0-0-1-0
  4. ATORVASTATIN [Concomitant]
     Active Substance: ATORVASTATIN
     Dosage: 20 MG, 0-0-1-0
  5. ISOPHANE INSULIN [Concomitant]
     Active Substance: INSULIN NOS
     Dosage: 1 IU, SCHEME
  6. INSULIN GLARGINE [Concomitant]
     Active Substance: INSULIN GLARGINE
     Dosage: 1 IU, 0-0-8-0
  7. PANTOPRAZOLE [Concomitant]
     Active Substance: PANTOPRAZOLE
     Dosage: 40 MG, 1-0-0-0
  8. TAMSULOSIN [Concomitant]
     Active Substance: TAMSULOSIN
     Dosage: 0.4 MG, 1-0-0-0
  9. TORSEMIDE [Concomitant]
     Active Substance: TORSEMIDE
     Dosage: 5 MG, 1-0-0-0

REACTIONS (13)
  - Dizziness [Unknown]
  - Hypotension [Unknown]
  - Anaemia [Unknown]
  - Condition aggravated [Unknown]
  - Systemic infection [Unknown]
  - Urinary incontinence [Unknown]
  - Haematuria [Unknown]
  - General physical health deterioration [Unknown]
  - Dementia [Unknown]
  - Urosepsis [Unknown]
  - Renal impairment [Unknown]
  - Dehydration [Unknown]
  - Memory impairment [Unknown]
